FAERS Safety Report 18325626 (Version 3)
Quarter: 2021Q2

REPORT INFORMATION
  Report Type: Report from Study
  Country: CL (occurrence: CL)
  Receive Date: 20200929
  Receipt Date: 20210517
  Transmission Date: 20210717
  Serious: Yes (Hospitalization, Other)
  Sender: FDA-Public Use
  Company Number: NVSC2020CL059306

PATIENT
  Age: 56 Year
  Sex: Female

DRUGS (3)
  1. SANDOSTATIN LAR DEPOT [Suspect]
     Active Substance: OCTREOTIDE ACETATE
     Indication: BRAIN NEOPLASM
     Dosage: UNK
     Route: 065
     Dates: start: 20200319
  2. SANDOSTATIN LAR DEPOT [Suspect]
     Active Substance: OCTREOTIDE ACETATE
     Indication: PITUITARY TUMOUR
     Dosage: 20 MG, QMO (SOLUTION)
     Route: 030
     Dates: start: 201708
  3. SANDOSTATIN LAR DEPOT [Suspect]
     Active Substance: OCTREOTIDE ACETATE
     Indication: PITUITARY ENLARGEMENT

REACTIONS (13)
  - Stress [Unknown]
  - Depression [Unknown]
  - Inappropriate schedule of product administration [Unknown]
  - Illness [Unknown]
  - Fall [Unknown]
  - Photopsia [Unknown]
  - Inflammation [Unknown]
  - Vomiting [Unknown]
  - Decompression sickness [Unknown]
  - Dizziness [Unknown]
  - Loss of consciousness [Unknown]
  - Headache [Unknown]
  - Wrong product administered [Unknown]

NARRATIVE: CASE EVENT DATE: 20200920
